FAERS Safety Report 6504763-0 (Version None)
Quarter: 2009Q4

REPORT INFORMATION
  Report Type: 
  Country: None (occurrence: None)
  Receive Date: 20091216
  Receipt Date: 20091202
  Transmission Date: 20100525
  Serious: Yes (Other)
  Sender: FDA-Public Use
  Company Number: 2008S1000037

PATIENT
  Age: 52 Year
  Sex: Male
  Weight: 80 kg

DRUGS (17)
  1. CUBICIN [Suspect]
     Indication: ENDOCARDITIS STAPHYLOCOCCAL
     Dosage: 4.4 MG/KG; Q24H;IV
     Route: 042
     Dates: start: 20071219, end: 20071229
  2. FILGRASTIM (FILGRASTIM) [Suspect]
     Indication: GRANULOCYTE COUNT DECREASED
     Dates: start: 20071231, end: 20080101
  3. MARCUMAR (CON.) [Concomitant]
  4. POTASSIUM (CON.) [Concomitant]
  5. OXAZEPAM (CON.) [Concomitant]
  6. BETA BLOCKING AGENTS (CON.) [Concomitant]
  7. GENTAMICIN (CON.) [Concomitant]
  8. AMPICILLIN (CON.) [Concomitant]
  9. PIRETANIDE (CON.) [Concomitant]
  10. HYDROCORTISONE (CON.) [Concomitant]
  11. METAMIZOLE (CON.) [Concomitant]
  12. CEFTRIAXONE (CON.) [Concomitant]
  13. FLUCLOXACILLIN (CON.) [Concomitant]
  14. INSULIN (CON.) [Concomitant]
  15. TRAMADOL (CON.) [Concomitant]
  16. VANCOMYCIN (CON.) [Concomitant]
  17. RIFAMPICIN (CON.) [Concomitant]

REACTIONS (9)
  - ABDOMINAL PAIN UPPER [None]
  - AGRANULOCYTOSIS [None]
  - DRUG INTOLERANCE [None]
  - DRUG TOXICITY [None]
  - HYPERTENSION [None]
  - RASH [None]
  - RENAL FAILURE [None]
  - SLEEP DISORDER [None]
  - WHITE BLOOD CELL COUNT INCREASED [None]
